FAERS Safety Report 8015863-0 (Version None)
Quarter: 2011Q4

REPORT INFORMATION
  Report Type: 
  Country: None (occurrence: None)
  Receive Date: 20111230
  Receipt Date: 20111221
  Transmission Date: 20120403
  Serious: Yes (Hospitalization)
  Sender: FDA-Public Use
  Company Number: US-GENZYME-THYR-1000590

PATIENT
  Sex: Female

DRUGS (1)
  1. THYROGEN [Suspect]
     Indication: DIAGNOSTIC PROCEDURE
     Dosage: UNK
     Route: 065
     Dates: start: 20111205

REACTIONS (8)
  - WHITE BLOOD CELL DISORDER [None]
  - HYPOACUSIS [None]
  - NAUSEA [None]
  - VISUAL IMPAIRMENT [None]
  - MOBILITY DECREASED [None]
  - VOMITING [None]
  - SPEECH DISORDER [None]
  - DECREASED APPETITE [None]
